FAERS Safety Report 6247236-5 (Version None)
Quarter: 2009Q2

REPORT INFORMATION
  Report Type: 
  Country: None (occurrence: None)
  Receive Date: 20090626
  Receipt Date: 20090622
  Transmission Date: 20091009
  Serious: Yes (Hospitalization)
  Sender: FDA-Public Use
  Company Number: AU-ASTRAZENECA-2009SE03038

PATIENT
  Sex: Female

DRUGS (10)
  1. ANASTROZOLE [Suspect]
     Indication: BREAST CANCER
     Route: 048
     Dates: start: 20090408, end: 20090529
  2. EBIXA [Concomitant]
     Route: 048
  3. ASPIRIN [Concomitant]
     Route: 048
  4. PRAVASTATIN [Concomitant]
     Route: 048
  5. CHOLECALCIFEROL [Concomitant]
     Route: 048
  6. CALTRATE [Concomitant]
     Route: 048
  7. COMBIGAN [Concomitant]
     Route: 061
  8. LUMIGAN [Concomitant]
     Route: 061
  9. AZOPT [Concomitant]
     Route: 061
  10. PROBIOTIC [Concomitant]
     Route: 048

REACTIONS (2)
  - CELLULITIS [None]
  - DERMATITIS [None]
